FAERS Safety Report 5514059-1 (Version None)
Quarter: 2007Q4

REPORT INFORMATION
  Report Type: 
  Country: None (occurrence: None)
  Receive Date: 20071109
  Receipt Date: 20071109
  Transmission Date: 20080405
  Serious: Yes (Hospitalization)
  Sender: FDA-Public Use
  Company Number: None

PATIENT
  Sex: Female
  Weight: 69.8539 kg

DRUGS (2)
  1. FAMVIR [Suspect]
  2. PAXIL [Suspect]

REACTIONS (2)
  - HEART RATE INCREASED [None]
  - HYPERVENTILATION [None]
